FAERS Safety Report 5237747-3 (Version None)
Quarter: 2007Q1

REPORT INFORMATION
  Report Type: 
  Country: None (occurrence: None)
  Receive Date: 20070214
  Receipt Date: 20070209
  Transmission Date: 20070707
  Serious: Yes (Life-Threatening, Hospitalization, Other)
  Sender: FDA-Public Use
  Company Number: US-GLAXOSMITHKLINE-A0637031A

PATIENT
  Age: 12 Year
  Sex: Female
  Weight: 40.5 kg

DRUGS (3)
  1. LAMICTAL [Suspect]
     Indication: DRUG USE FOR UNKNOWN INDICATION
     Dosage: 12.5MG PER DAY
     Route: 048
     Dates: start: 20061101, end: 20061201
  2. ADDERALL 10 [Concomitant]
  3. RISPERDAL [Concomitant]

REACTIONS (2)
  - HEPATIC FAILURE [None]
  - RASH [None]
